FAERS Safety Report 23194358 (Version 3)
Quarter: 2023Q4

REPORT INFORMATION
  Report Type: Spontaneous
  Country: JP (occurrence: JP)
  Receive Date: 20231117
  Receipt Date: 20231218
  Transmission Date: 20240109
  Serious: Yes (Other)
  Sender: FDA-Public Use
  Company Number: JP-MSD-M2023-48719

PATIENT
  Sex: Female

DRUGS (1)
  1. KEYTRUDA [Suspect]
     Active Substance: PEMBROLIZUMAB
     Indication: Triple negative breast cancer
     Dosage: 200 MILLIGRAM, Q3W
     Route: 041
     Dates: start: 20230728

REACTIONS (5)
  - Immune-mediated hepatic disorder [Unknown]
  - Type 1 diabetes mellitus [Not Recovered/Not Resolved]
  - Tri-iodothyronine free increased [Unknown]
  - Thyroxine free increased [Unknown]
  - Blood thyroid stimulating hormone decreased [Unknown]

NARRATIVE: CASE EVENT DATE: 20231101
